FAERS Safety Report 25677989 (Version 1)
Quarter: 2025Q3

REPORT INFORMATION
  Report Type: Spontaneous
  Country: CA (occurrence: CA)
  Receive Date: 20250813
  Receipt Date: 20250813
  Transmission Date: 20251020
  Serious: Yes (Other)
  Sender: MYLAN
  Company Number: CA-MYLANLABS-2025M1053699

PATIENT
  Sex: Female

DRUGS (48)
  1. REVATIO [Suspect]
     Active Substance: SILDENAFIL CITRATE
     Indication: Pulmonary arterial hypertension
     Dosage: 20 MILLIGRAM, TID (3 TIMES A DAY)
     Dates: start: 20241204
  2. REVATIO [Suspect]
     Active Substance: SILDENAFIL CITRATE
     Dosage: 20 MILLIGRAM, TID (3 TIMES A DAY)
     Route: 048
     Dates: start: 20241204
  3. REVATIO [Suspect]
     Active Substance: SILDENAFIL CITRATE
     Dosage: 20 MILLIGRAM, TID (3 TIMES A DAY)
     Route: 048
     Dates: start: 20241204
  4. REVATIO [Suspect]
     Active Substance: SILDENAFIL CITRATE
     Dosage: 20 MILLIGRAM, TID (3 TIMES A DAY)
     Dates: start: 20241204
  5. UPTRAVI [Concomitant]
     Active Substance: SELEXIPAG
  6. UPTRAVI [Concomitant]
     Active Substance: SELEXIPAG
     Route: 065
  7. UPTRAVI [Concomitant]
     Active Substance: SELEXIPAG
     Route: 065
  8. UPTRAVI [Concomitant]
     Active Substance: SELEXIPAG
  9. OPSUMIT [Concomitant]
     Active Substance: MACITENTAN
  10. OPSUMIT [Concomitant]
     Active Substance: MACITENTAN
     Route: 065
  11. OPSUMIT [Concomitant]
     Active Substance: MACITENTAN
     Route: 065
  12. OPSUMIT [Concomitant]
     Active Substance: MACITENTAN
  13. FUROSEMIDE [Concomitant]
     Active Substance: FUROSEMIDE
  14. FUROSEMIDE [Concomitant]
     Active Substance: FUROSEMIDE
     Route: 065
  15. FUROSEMIDE [Concomitant]
     Active Substance: FUROSEMIDE
     Route: 065
  16. FUROSEMIDE [Concomitant]
     Active Substance: FUROSEMIDE
  17. GABAPENTIN [Concomitant]
     Active Substance: GABAPENTIN
  18. GABAPENTIN [Concomitant]
     Active Substance: GABAPENTIN
     Route: 065
  19. GABAPENTIN [Concomitant]
     Active Substance: GABAPENTIN
     Route: 065
  20. GABAPENTIN [Concomitant]
     Active Substance: GABAPENTIN
  21. ACETAMINOPHEN [Concomitant]
     Active Substance: ACETAMINOPHEN
  22. ACETAMINOPHEN [Concomitant]
     Active Substance: ACETAMINOPHEN
     Route: 065
  23. ACETAMINOPHEN [Concomitant]
     Active Substance: ACETAMINOPHEN
     Route: 065
  24. ACETAMINOPHEN [Concomitant]
     Active Substance: ACETAMINOPHEN
  25. Jamp k8 [Concomitant]
  26. Jamp k8 [Concomitant]
     Route: 065
  27. Jamp k8 [Concomitant]
     Route: 065
  28. Jamp k8 [Concomitant]
  29. METFORMIN [Concomitant]
     Active Substance: METFORMIN HYDROCHLORIDE
  30. METFORMIN [Concomitant]
     Active Substance: METFORMIN HYDROCHLORIDE
     Route: 065
  31. METFORMIN [Concomitant]
     Active Substance: METFORMIN HYDROCHLORIDE
     Route: 065
  32. METFORMIN [Concomitant]
     Active Substance: METFORMIN HYDROCHLORIDE
  33. ESCITALOPRAM [Concomitant]
     Active Substance: ESCITALOPRAM OXALATE
  34. ESCITALOPRAM [Concomitant]
     Active Substance: ESCITALOPRAM OXALATE
     Route: 065
  35. ESCITALOPRAM [Concomitant]
     Active Substance: ESCITALOPRAM OXALATE
     Route: 065
  36. ESCITALOPRAM [Concomitant]
     Active Substance: ESCITALOPRAM OXALATE
  37. ATORVASTATIN [Concomitant]
     Active Substance: ATORVASTATIN
  38. ATORVASTATIN [Concomitant]
     Active Substance: ATORVASTATIN
     Route: 065
  39. ATORVASTATIN [Concomitant]
     Active Substance: ATORVASTATIN
     Route: 065
  40. ATORVASTATIN [Concomitant]
     Active Substance: ATORVASTATIN
  41. MAGNESIUM [Concomitant]
     Active Substance: MAGNESIUM
  42. MAGNESIUM [Concomitant]
     Active Substance: MAGNESIUM
     Route: 065
  43. MAGNESIUM [Concomitant]
     Active Substance: MAGNESIUM
     Route: 065
  44. MAGNESIUM [Concomitant]
     Active Substance: MAGNESIUM
  45. ZAROXOLYN [Concomitant]
     Active Substance: METOLAZONE
  46. ZAROXOLYN [Concomitant]
     Active Substance: METOLAZONE
     Route: 065
  47. ZAROXOLYN [Concomitant]
     Active Substance: METOLAZONE
     Route: 065
  48. ZAROXOLYN [Concomitant]
     Active Substance: METOLAZONE

REACTIONS (6)
  - Renal impairment [Unknown]
  - Blood insulin increased [Unknown]
  - Chest pain [Unknown]
  - Headache [Recovered/Resolved]
  - Pain in extremity [Recovered/Resolved]
  - Diarrhoea [Recovered/Resolved]
